FAERS Safety Report 7709168-2 (Version None)
Quarter: 2011Q3

REPORT INFORMATION
  Report Type: 
  Country: None (occurrence: None)
  Receive Date: 20110825
  Receipt Date: 20110817
  Transmission Date: 20111222
  Serious: Yes (Other)
  Sender: FDA-Public Use
  Company Number: PHFR2011GB03379

PATIENT
  Sex: Female

DRUGS (4)
  1. LITHIUM CARBONATE [Concomitant]
     Indication: SCHIZOAFFECTIVE DISORDER
     Dosage: 1200 MG/DAY
     Route: 048
  2. LAMOTRIGINE [Concomitant]
     Dosage: 250 MG, BID
     Route: 048
  3. ARIPIPRAZOLE [Concomitant]
     Indication: SCHIZOAFFECTIVE DISORDER
     Dosage: 5 MG/DAY
     Route: 048
  4. CLOZAPINE [Suspect]
     Indication: SCHIZOPHRENIA
     Dosage: 325 MG/DAY
     Route: 048
     Dates: start: 20040723

REACTIONS (6)
  - DISORIENTATION [None]
  - LETHARGY [None]
  - WHITE BLOOD CELL COUNT INCREASED [None]
  - CONFUSIONAL STATE [None]
  - HYPOTENSION [None]
  - NEUTROPHIL COUNT INCREASED [None]
